FAERS Safety Report 4322043-9 (Version None)
Quarter: 2004Q1

REPORT INFORMATION
  Report Type: 
  Country: None (occurrence: None)
  Receive Date: 20040319
  Receipt Date: 20040311
  Transmission Date: 20041129
  Serious: Yes (Hospitalization)
  Sender: FDA-Public Use
  Company Number: 2004UW04557

PATIENT
  Age: 78 Year
  Sex: Female
  Weight: 65.8 kg

DRUGS (16)
  1. ATENOLOL [Suspect]
     Dosage: 50 MG BID PO
     Route: 048
     Dates: start: 20001201
  2. ZITHROMAX [Suspect]
     Indication: BRONCHITIS
     Dates: start: 20030901
  3. ZOLEDRONIC ACID [Suspect]
     Indication: OSTEOPOROSIS POSTMENOPAUSAL
     Dates: start: 20030303
  4. OSCAL [Concomitant]
  5. VITAMIN D [Concomitant]
  6. ARICEPT [Concomitant]
  7. ASPIRIN ENTERIC COATED K.P. [Concomitant]
  8. ISOSORBIDE [Concomitant]
  9. ZOLOFT [Concomitant]
  10. LIPITOR [Concomitant]
  11. EXTRA STRENGTH TYLENOL [Concomitant]
  12. SILVADENE [Concomitant]
  13. IMDUR [Concomitant]
  14. COLACE [Concomitant]
  15. ECOTRIN [Concomitant]
  16. ROBITUSSIN [Concomitant]

REACTIONS (11)
  - ACCIDENTAL OVERDOSE [None]
  - ASTHENIA [None]
  - BRADYCARDIA [None]
  - CHEST PAIN [None]
  - CIRCULATORY COLLAPSE [None]
  - CONFUSIONAL STATE [None]
  - HYPERTENSION [None]
  - INCOHERENT [None]
  - MENTAL STATUS CHANGES [None]
  - NAUSEA [None]
  - VOMITING [None]
